FAERS Safety Report 21411784 (Version 7)
Quarter: 2023Q4

REPORT INFORMATION
  Report Type: Spontaneous
  Country: US (occurrence: US)
  Receive Date: 20221005
  Receipt Date: 20231023
  Transmission Date: 20240110
  Serious: Yes (Other)
  Sender: FDA-Public Use
  Company Number: US-PFIZER INC-PV202200075810

PATIENT
  Age: 66 Year
  Sex: Female

DRUGS (5)
  1. XELJANZ XR [Suspect]
     Active Substance: TOFACITINIB CITRATE
     Indication: Rheumatoid arthritis
     Dosage: 11 MG, 1X/DAY
     Route: 048
     Dates: start: 20220707
  2. XELJANZ XR [Suspect]
     Active Substance: TOFACITINIB CITRATE
     Dosage: 11 MG, DAILY
     Route: 048
     Dates: start: 20220723, end: 20230129
  3. XELJANZ XR [Suspect]
     Active Substance: TOFACITINIB CITRATE
     Dosage: 11 MG, DAILY
     Route: 048
     Dates: start: 20230226, end: 20230627
  4. XELJANZ XR [Suspect]
     Active Substance: TOFACITINIB CITRATE
     Dosage: 11 MG, 1X/DAY
     Route: 048
     Dates: start: 2023
  5. RASUVO [Concomitant]
     Active Substance: METHOTREXATE SODIUM
     Dosage: UNK

REACTIONS (15)
  - Bacterial rhinitis [Unknown]
  - Urinary tract infection [Recovered/Resolved]
  - Drug ineffective [Not Recovered/Not Resolved]
  - Burning sensation [Unknown]
  - Pain [Unknown]
  - Hepatic enzyme increased [Recovered/Resolved]
  - Frustration tolerance decreased [Unknown]
  - Epistaxis [Recovered/Resolved]
  - Rhinorrhoea [Unknown]
  - Nasal dryness [Unknown]
  - Pain in extremity [Unknown]
  - Wrong dose [Unknown]
  - Depression [Unknown]
  - Discouragement [Unknown]
  - Condition aggravated [Unknown]

NARRATIVE: CASE EVENT DATE: 20220101
